FAERS Safety Report 4892300-6 (Version None)
Quarter: 2006Q1

REPORT INFORMATION
  Report Type: 
  Country: None (occurrence: None)
  Receive Date: 20060125
  Receipt Date: 20060125
  Transmission Date: 20060701
  Serious: Yes (Other)
  Sender: FDA-Public Use
  Company Number: None

PATIENT
  Sex: Male

DRUGS (3)
  1. TEGASEROD 6 MG [Suspect]
     Indication: GASTROINTESTINAL MOTILITY DISORDER
     Dosage: 6 MG PO DAILY
     Route: 048
     Dates: start: 20050916, end: 20060124
  2. PROTONIX [Concomitant]
  3. ALBUTEROL [Concomitant]

REACTIONS (2)
  - COAGULATION TIME PROLONGED [None]
  - INCREASED TENDENCY TO BRUISE [None]
